FAERS Safety Report 19730227 (Version 2)
Quarter: 2021Q3

REPORT INFORMATION
  Report Type: Spontaneous
  Country: US (occurrence: US)
  Receive Date: 20210820
  Receipt Date: 20210913
  Transmission Date: 20211014
  Serious: Yes (Death, Hospitalization, Other)
  Sender: FDA-Public Use
  Company Number: US-GILEAD-2021-0544938

PATIENT
  Age: 55 Year
  Sex: Male

DRUGS (1)
  1. TECARTUS [Suspect]
     Active Substance: BREXUCABTAGENE AUTOLEUCEL
     Indication: MANTLE CELL LYMPHOMA
     Route: 042
     Dates: start: 20210726, end: 20210726

REACTIONS (3)
  - Bacteraemia [Fatal]
  - Immune effector cell-associated neurotoxicity syndrome [Unknown]
  - Septic shock [Fatal]

NARRATIVE: CASE EVENT DATE: 2021
